FAERS Safety Report 6327924-2 (Version None)
Quarter: 2009Q3

REPORT INFORMATION
  Report Type: 
  Country: None (occurrence: None)
  Receive Date: 20090825
  Receipt Date: 20080805
  Transmission Date: 20100115
  Serious: No
  Sender: FDA-Public Use
  Company Number: US-ABBOTT-08P-163-0468589-00

PATIENT
  Sex: Female
  Weight: 71.732 kg

DRUGS (6)
  1. SYNTHROID [Suspect]
     Indication: HYPOTHYROIDISM
     Route: 048
     Dates: start: 20020101, end: 20060101
  2. SYNTHROID [Suspect]
     Route: 048
     Dates: start: 20060101, end: 20061201
  3. SYNTHROID [Suspect]
     Route: 048
     Dates: start: 20061201
  4. CHOLESTOL [Concomitant]
     Indication: DRUG USE FOR UNKNOWN INDICATION
  5. CHONDROITIN SODIUM SULFATE W/GLUCOSAMINE HCL [Concomitant]
     Indication: DRUG USE FOR UNKNOWN INDICATION
  6. PARACETAMOL [Concomitant]
     Indication: ARTHRITIS

REACTIONS (1)
  - THYROID FUNCTION TEST ABNORMAL [None]
